FAERS Safety Report 12562808 (Version 1)
Quarter: 2016Q3

REPORT INFORMATION
  Report Type: Spontaneous
  Country: US (occurrence: US)
  Receive Date: 20160715
  Receipt Date: 20160715
  Transmission Date: 20161109
  Serious: No
  Sender: FDA-Public Use
  Company Number: US-NOVOPROD-496646

PATIENT
  Age: 67 Year
  Sex: Female

DRUGS (1)
  1. TRESIBA FLEXTOUCH U200 [Suspect]
     Active Substance: INSULIN DEGLUDEC
     Indication: PRODUCT USED FOR UNKNOWN INDICATION
     Dosage: 12 U, QD
     Route: 058

REACTIONS (5)
  - Cystitis [Recovered/Resolved]
  - Back pain [Recovered/Resolved]
  - Arthralgia [Recovered/Resolved]
  - Constipation [Recovered/Resolved]
  - Abdominal distension [Recovered/Resolved]
